FAERS Safety Report 13403076 (Version 1)
Quarter: 2017Q2

REPORT INFORMATION
  Report Type: Report from Study
  Country: US (occurrence: US)
  Receive Date: 20170404
  Receipt Date: 20170404
  Transmission Date: 20170830
  Serious: No
  Sender: FDA-Public Use
  Company Number: GXBR2017US001003

PATIENT
  Age: 11 Year
  Sex: Female
  Weight: 35.9 kg

DRUGS (3)
  1. OMNITROPE [Suspect]
     Active Substance: SOMATROPIN
     Indication: GROWTH RETARDATION
     Dosage: 1.5 MG, QD
     Route: 065
     Dates: start: 201107
  2. MOTRIN [Concomitant]
     Active Substance: IBUPROFEN
     Dosage: UNK DF, PRN
  3. MULTI VITAMIN [Concomitant]
     Active Substance: VITAMINS
     Dosage: UNK DF, UNK

REACTIONS (3)
  - Headache [Not Recovered/Not Resolved]
  - Musculoskeletal discomfort [Not Recovered/Not Resolved]
  - Pain in extremity [Not Recovered/Not Resolved]

NARRATIVE: CASE EVENT DATE: 20160606
